FAERS Safety Report 4605011-9 (Version None)
Quarter: 2005Q2

REPORT INFORMATION
  Report Type: 
  Country: None (occurrence: None)
  Receive Date: 20050217
  Receipt Date: 20041021
  Transmission Date: 20051028
  Serious: Yes (Hospitalization)
  Sender: FDA-Public Use
  Company Number: S04-USA-06489-01

PATIENT
  Age: 50 Year
  Sex: Male

DRUGS (9)
  1. NAMENDA [Suspect]
     Indication: DEMENTIA ALZHEIMER'S TYPE
     Dosage: 10 MG BID PO
     Route: 048
     Dates: start: 20040722, end: 20040801
  2. NAMENDA [Suspect]
     Dosage: 5 MG QD PO
     Route: 048
     Dates: start: 20040701, end: 20040707
  3. NAMENDA [Suspect]
     Dosage: 5 MG BID PO
     Route: 048
     Dates: start: 20040708, end: 20040714
  4. NAMENDA [Suspect]
     Dosage: 15 MG QD PO
     Route: 048
     Dates: start: 20040715, end: 20040721
  5. ZYPREXA [Concomitant]
  6. LUVOX [Concomitant]
  7. DEPAKOTE [Concomitant]
  8. DILANTIN [Concomitant]
  9. ZONEGRAN [Concomitant]

REACTIONS (1)
  - PNEUMONIA [None]
